FAERS Safety Report 5853648-1 (Version None)
Quarter: 2008Q3

REPORT INFORMATION
  Report Type: 
  Country: None (occurrence: None)
  Receive Date: 20080822
  Receipt Date: 20080815
  Transmission Date: 20090109
  Serious: Yes (Disabling)
  Sender: FDA-Public Use
  Company Number: NO-ASTRAZENECA-2008SE03903

PATIENT
  Sex: Male

DRUGS (1)
  1. SEROQUEL IR [Suspect]
     Route: 048

REACTIONS (2)
  - COGNITIVE DISORDER [None]
  - ENURESIS [None]
